FAERS Safety Report 19876688 (Version 11)
Quarter: 2022Q3

REPORT INFORMATION
  Report Type: Report from Study
  Country: US (occurrence: US)
  Receive Date: 20210923
  Receipt Date: 20220718
  Transmission Date: 20221027
  Serious: Yes (Other)
  Sender: FDA-Public Use
  Company Number: NVSC2021US212707

PATIENT
  Age: 40 Year
  Sex: Female

DRUGS (2)
  1. KESIMPTA [Suspect]
     Active Substance: OFATUMUMAB
     Indication: Relapsing multiple sclerosis
     Dosage: 20 MG, QMO
     Route: 058
     Dates: start: 20210905
  2. KESIMPTA [Suspect]
     Active Substance: OFATUMUMAB
     Indication: Multiple sclerosis
     Dosage: 20 MG, QMO
     Route: 058
     Dates: start: 20220403

REACTIONS (9)
  - Deafness [Not Recovered/Not Resolved]
  - Ear pruritus [Not Recovered/Not Resolved]
  - Pain [Not Recovered/Not Resolved]
  - Ear infection [Recovering/Resolving]
  - Illness [Unknown]
  - Cough [Recovering/Resolving]
  - Arthralgia [Not Recovered/Not Resolved]
  - Pyrexia [Recovered/Resolved]
  - Headache [Not Recovered/Not Resolved]

NARRATIVE: CASE EVENT DATE: 20210905
